FAERS Safety Report 14099451 (Version 1)
Quarter: 2017Q4

REPORT INFORMATION
  Report Type: Spontaneous
  Country: US (occurrence: US)
  Receive Date: 20171017
  Receipt Date: 20171017
  Transmission Date: 20180321
  Serious: No
  Sender: FDA-Public Use
  Company Number: US-ALKERMES INC.-ALK-2017-003101

PATIENT
  Age: 21 Year
  Sex: Male
  Weight: 114.74 kg

DRUGS (1)
  1. ARISTADA [Suspect]
     Active Substance: ARIPIPRAZOLE LAUROXIL
     Indication: PSYCHOTIC DISORDER
     Dosage: 662 MG, QMO
     Route: 030
     Dates: start: 201607

REACTIONS (3)
  - Off label use [Not Recovered/Not Resolved]
  - Rash vesicular [Recovered/Resolved]
  - Tremor [Unknown]

NARRATIVE: CASE EVENT DATE: 201702
